FAERS Safety Report 4512255-3 (Version None)
Quarter: 2004Q4

REPORT INFORMATION
  Report Type: 
  Country: None (occurrence: None)
  Receive Date: 20041123
  Receipt Date: 20041112
  Transmission Date: 20050328
  Serious: Yes (Life-Threatening)
  Sender: FDA-Public Use
  Company Number: 2004US000143

PATIENT
  Age: 9 Year
  Sex: Male

DRUGS (5)
  1. AMBISOME [Suspect]
     Indication: PYREXIA
     Dosage: SEE IMAGE
     Route: 042
     Dates: start: 20031225, end: 20040111
  2. AMBISOME [Suspect]
     Indication: PYREXIA
     Dosage: SEE IMAGE
     Route: 042
     Dates: start: 20031225, end: 20040113
  3. AMBISOME [Suspect]
     Indication: PYREXIA
     Dosage: SEE IMAGE
     Route: 042
     Dates: start: 20040113, end: 20040113
  4. MEROPENEM               (MEROPENEM) [Concomitant]
  5. TEICOPLANIN     (TEICOPLANIN) [Concomitant]

REACTIONS (9)
  - ABDOMINAL PAIN [None]
  - CEREBRAL HAEMORRHAGE [None]
  - CHROMATURIA [None]
  - HYPERTENSION [None]
  - INTRAVASCULAR HAEMOLYSIS [None]
  - SURGICAL PROCEDURE REPEATED [None]
  - THROMBOCYTOPENIA [None]
  - TRANSPLANT [None]
  - VOMITING [None]
